FAERS Safety Report 5167993-9 (Version None)
Quarter: 2006Q4

REPORT INFORMATION
  Report Type: 
  Country: None (occurrence: None)
  Receive Date: 20061208
  Receipt Date: 20060109
  Transmission Date: 20070319
  Serious: No
  Sender: FDA-Public Use
  Company Number: US-GLAXOSMITHKLINE-A0588352A

PATIENT
  Sex: Male

DRUGS (7)
  1. AVANDAMET [Suspect]
     Route: 048
  2. GLYBURIDE [Concomitant]
  3. ZOCOR [Concomitant]
  4. AVAPRO [Concomitant]
  5. ASPIRIN [Concomitant]
  6. VITAMINS [Concomitant]
  7. ASCORBIC ACID [Concomitant]

REACTIONS (1)
  - DRUG INEFFECTIVE [None]
